FAERS Safety Report 8516075-4 (Version None)
Quarter: 2012Q3

REPORT INFORMATION
  Report Type: 
  Country: None (occurrence: None)
  Receive Date: 20120717
  Receipt Date: 20120712
  Transmission Date: 20120928
  Serious: Yes (Other)
  Sender: FDA-Public Use
  Company Number: US-PFIZER INC-2012044973

PATIENT
  Sex: Female
  Weight: 97.506 kg

DRUGS (12)
  1. PREMARIN [Concomitant]
     Dosage: 0.625 MG, 1X/DAY
  2. ALPRAZOLAM [Concomitant]
     Dosage: 0.25 MG, 1X/DAY
  3. CELEBREX [Suspect]
     Dosage: 200 MG, 2X/DAY
     Route: 048
     Dates: start: 20110101
  4. SPIRONOLACTONE W/ HYDROCHLOROTHIAZIDE [Concomitant]
     Dosage: 25/25 MG, 1X/DAY
     Route: 048
  5. VERAPAMIL [Concomitant]
     Dosage: 180 MG, 2X/DAY
  6. CELEBREX [Suspect]
     Dosage: UNK
     Route: 048
  7. ALBUTEROL [Concomitant]
     Dosage: UNK
  8. ASPIRIN [Concomitant]
     Dosage: 81 MG, 1X/DAY
  9. TRAZODONE [Concomitant]
     Dosage: 50 MG, 1X/DAY
  10. CELEBREX [Suspect]
     Indication: OSTEOARTHRITIS
     Dosage: 200 MG, 2X/DAY
     Route: 048
     Dates: end: 20110101
  11. LEVOTHYROXINE [Concomitant]
     Dosage: UNK
  12. PRAVASTATIN [Concomitant]
     Dosage: UNK, 1X/DAY

REACTIONS (6)
  - MUSCULOSKELETAL STIFFNESS [None]
  - ABASIA [None]
  - WEIGHT INCREASED [None]
  - FALL [None]
  - PAIN [None]
  - THYROID FUNCTION TEST ABNORMAL [None]
